FAERS Safety Report 8008821-3 (Version None)
Quarter: 2011Q4

REPORT INFORMATION
  Report Type: 
  Country: None (occurrence: None)
  Receive Date: 20111227
  Receipt Date: 20111220
  Transmission Date: 20120403
  Serious: Yes (Other)
  Sender: FDA-Public Use
  Company Number: PHHY2011JP111320

PATIENT
  Age: 59 Year
  Sex: Female

DRUGS (1)
  1. ZOLEDRONIC ACID [Suspect]
     Indication: BONE LESION
     Dosage: UNK UKN, UNK
     Route: 041
     Dates: start: 20081101

REACTIONS (1)
  - OSTEONECROSIS OF JAW [None]
